FAERS Safety Report 17979687 (Version 1)
Quarter: 2020Q3

REPORT INFORMATION
  Report Type: Spontaneous
  Country: GB (occurrence: GB)
  Receive Date: 20200703
  Receipt Date: 20200703
  Transmission Date: 20201103
  Serious: Yes (Other)
  Sender: FDA-Public Use
  Company Number: NVSC2020GB182764

PATIENT
  Age: 87 Year
  Sex: Male

DRUGS (2)
  1. METHOTREXATE. [Suspect]
     Active Substance: METHOTREXATE
     Indication: B-CELL LYMPHOMA
     Dosage: 3 G (1.5G/M2))
     Route: 042
     Dates: start: 20190807
  2. SODIUM HYDROGEN CARBONATE [Suspect]
     Active Substance: SODIUM BICARBONATE
     Indication: PRODUCT USED FOR UNKNOWN INDICATION
     Dosage: UNK
     Route: 042
     Dates: start: 20190807

REACTIONS (3)
  - Blood creatinine increased [Unknown]
  - Blood potassium increased [Unknown]
  - Electrocardiogram abnormal [Unknown]
